FAERS Safety Report 25186404 (Version 1)
Quarter: 2025Q2

REPORT INFORMATION
  Report Type: Spontaneous
  Country: GB (occurrence: GB)
  Receive Date: 20250410
  Receipt Date: 20250410
  Transmission Date: 20250716
  Serious: Yes (Other)
  Sender: ACCORD
  Company Number: None

PATIENT
  Age: 51 Year
  Sex: Male
  Weight: 96 kg

DRUGS (7)
  1. TOPIRAMATE [Suspect]
     Active Substance: TOPIRAMATE
     Indication: Product used for unknown indication
     Dosage: TAKE TWO TWICE DAILY, STRENGTH: 100 MG
     Dates: start: 20240625
  2. ALLOPURINOL [Concomitant]
     Active Substance: ALLOPURINOL
     Indication: Gout
     Dosage: TAKE ONE TABLET DAILY TO HELP PREVENT GOUT
     Dates: start: 20231011
  3. ATORVASTATIN [Concomitant]
     Active Substance: ATORVASTATIN
     Dates: start: 20231114
  4. OMEPRAZOLE [Concomitant]
     Active Substance: OMEPRAZOLE
     Dates: start: 20230413
  5. RAMIPRIL [Concomitant]
     Active Substance: RAMIPRIL
     Dates: start: 20230413
  6. BUPIVACAINE [Concomitant]
     Active Substance: BUPIVACAINE
     Dates: start: 20250213, end: 20250214
  7. LIDOCAINE [Concomitant]
     Active Substance: LIDOCAINE
     Dates: start: 20250213, end: 20250214

REACTIONS (1)
  - Cognitive disorder [Recovered/Resolved]
